FAERS Safety Report 25787654 (Version 3)
Quarter: 2025Q4

REPORT INFORMATION
  Report Type: Spontaneous
  Country: US (occurrence: US)
  Receive Date: 20250910
  Receipt Date: 20251008
  Transmission Date: 20260117
  Serious: No
  Sender: CALLIDITAS THERAPEUTICS AB
  Company Number: US-Calliditas-2025CAL02708

PATIENT
  Age: 50 Year
  Sex: Female

DRUGS (14)
  1. TARPEYO [Suspect]
     Active Substance: BUDESONIDE
     Indication: IgA nephropathy
     Route: 048
     Dates: start: 20250722
  2. ACETAMINOPHEN [Concomitant]
     Active Substance: ACETAMINOPHEN
  3. ALBUTEROL SULFATE [Concomitant]
     Active Substance: ALBUTEROL SULFATE
  4. APIXABAN [Concomitant]
     Active Substance: APIXABAN
  5. AZITHROMYCIN [Concomitant]
     Active Substance: AZITHROMYCIN
  6. CEFTRIAXONE [Concomitant]
     Active Substance: CEFTRIAXONE
  7. DUONEB [Concomitant]
     Active Substance: ALBUTEROL SULFATE\IPRATROPIUM BROMIDE
  8. HEPARIN [Concomitant]
     Active Substance: HEPARIN SODIUM
  9. HYDRALAZINE [Concomitant]
     Active Substance: HYDRALAZINE HYDROCHLORIDE
  10. MELATONIN [Concomitant]
     Active Substance: MELATONIN
  11. MIRALAX [Concomitant]
     Active Substance: POLYETHYLENE GLYCOL 3350
  12. ONDANSETRON [Concomitant]
     Active Substance: ONDANSETRON
  13. SODIUM BICARBONATE [Concomitant]
     Active Substance: SODIUM BICARBONATE
  14. SODIUM CHLORIDE [Concomitant]
     Active Substance: SODIUM CHLORIDE

REACTIONS (1)
  - Herpes zoster [Unknown]

NARRATIVE: CASE EVENT DATE: 20250828
